FAERS Safety Report 4798108-4 (Version None)
Quarter: 2005Q4

REPORT INFORMATION
  Report Type: 
  Country: None (occurrence: None)
  Receive Date: 20051011
  Receipt Date: 20051011
  Transmission Date: 20060501
  Serious: Yes (Other)
  Sender: FDA-Public Use
  Company Number: None

PATIENT
  Age: 41 Year
  Sex: Female

DRUGS (4)
  1. DOCETAXEL [Suspect]
     Indication: BREAST CANCER STAGE I
     Dosage: 100MG/M2 Q 3WK X 4 DOSES
     Dates: start: 20030311
  2. ADRIAMYCIN PFS [Suspect]
     Dosage: 60MG/M2
  3. CYTOXAN [Suspect]
     Dosage: 600MG/M2
  4. TAXOTERE [Concomitant]

REACTIONS (9)
  - ALOPECIA [None]
  - ARTHRALGIA [None]
  - CANDIDIASIS [None]
  - FLUID RETENTION [None]
  - MYALGIA [None]
  - NEUROPATHY [None]
  - PHARYNGOLARYNGEAL PAIN [None]
  - PYREXIA [None]
  - STOMATITIS [None]
